FAERS Safety Report 6785922-9 (Version None)
Quarter: 2010Q2

REPORT INFORMATION
  Report Type: 
  Country: None (occurrence: None)
  Receive Date: 20100623
  Receipt Date: 20100611
  Transmission Date: 20101027
  Serious: Yes (Other)
  Sender: FDA-Public Use
  Company Number: BR-ELI_LILLY_AND_COMPANY-BR201006003675

PATIENT
  Age: 32 Year
  Sex: Female

DRUGS (2)
  1. HUMULIN N [Suspect]
     Dosage: UNK, UNKNOWN
     Route: 065
  2. HUMULIN R [Suspect]
     Dosage: UNK, UNKNOWN
     Route: 065

REACTIONS (5)
  - ECONOMIC PROBLEM [None]
  - HYPERGLYCAEMIA [None]
  - INSOMNIA [None]
  - PAIN IN EXTREMITY [None]
  - VISUAL ACUITY REDUCED [None]
